FAERS Safety Report 5636412-8 (Version None)
Quarter: 2008Q1

REPORT INFORMATION
  Report Type: 
  Country: None (occurrence: None)
  Receive Date: 20080225
  Receipt Date: 20071218
  Transmission Date: 20080703
  Serious: No
  Sender: FDA-Public Use
  Company Number: A0699524A

PATIENT
  Age: 43 Year
  Sex: Male

DRUGS (2)
  1. VERAMYST [Suspect]
     Indication: CHRONIC SINUSITIS
     Dosage: 4SPR PER DAY
     Route: 045
     Dates: start: 20071101, end: 20071215
  2. ZYRTEC [Concomitant]

REACTIONS (1)
  - EPISTAXIS [None]
